FAERS Safety Report 7122578-X (Version None)
Quarter: 2010Q4

REPORT INFORMATION
  Report Type: 
  Country: None (occurrence: None)
  Receive Date: 20101124
  Receipt Date: 20101111
  Transmission Date: 20110411
  Serious: Yes (Disabling)
  Sender: FDA-Public Use
  Company Number: PHHY2010CH76393

PATIENT
  Age: 69 Year
  Sex: Female

DRUGS (3)
  1. ZOMETA [Suspect]
     Indication: METASTASES TO BONE
     Dosage: 0.4MG/ 6 WEEKS
     Route: 042
     Dates: start: 20091101
  2. XELODA [Suspect]
     Indication: BREAST CANCER
     Dosage: UNK
     Route: 042
     Dates: end: 20100915
  3. NAVELBINE [Suspect]
     Indication: BREAST CANCER
     Dosage: UNK
     Route: 042
     Dates: end: 20100915

REACTIONS (4)
  - DEBRIDEMENT [None]
  - LOOSE TOOTH [None]
  - ORAL DISORDER [None]
  - OSTEONECROSIS OF JAW [None]
